FAERS Safety Report 8317880-X (Version None)
Quarter: 2012Q2

REPORT INFORMATION
  Report Type: 
  Country: None (occurrence: None)
  Receive Date: 20120427
  Receipt Date: 20110316
  Transmission Date: 20120825
  Serious: No
  Sender: FDA-Public Use
  Company Number: US-MYLANLABS-2011S1005643

PATIENT
  Age: 42 Year
  Sex: Female

DRUGS (4)
  1. INDERAL [Concomitant]
     Route: 048
  2. METHIMAZOLE [Suspect]
     Route: 048
     Dates: start: 20080801, end: 20110307
  3. METHIMAZOLE [Suspect]
     Indication: BASEDOW'S DISEASE
     Route: 048
     Dates: start: 20080101, end: 20080401
  4. LASIX [Concomitant]
     Route: 048

REACTIONS (4)
  - THYROID DISORDER [None]
  - MUSCLE SPASMS [None]
  - ARTHRALGIA [None]
  - HAEMOGLOBIN INCREASED [None]
